FAERS Safety Report 24279646 (Version 1)
Quarter: 2024Q3

REPORT INFORMATION
  Report Type: Spontaneous
  Country: JP (occurrence: JP)
  Receive Date: 20240904
  Receipt Date: 20240904
  Transmission Date: 20241017
  Serious: Yes (Other)
  Sender: AMGEN
  Company Number: JP-AMGEN-JPNSP2024171321

PATIENT
  Sex: Male

DRUGS (2)
  1. LUMAKRAS [Suspect]
     Active Substance: SOTORASIB
     Indication: Lung neoplasm malignant
     Dosage: UNK
     Route: 048
     Dates: start: 202308
  2. LUMAKRAS [Suspect]
     Active Substance: SOTORASIB
     Dosage: UNK
     Route: 048
     Dates: start: 20240826

REACTIONS (2)
  - Hepatitis fulminant [Unknown]
  - Metastases to central nervous system [Unknown]
